FAERS Safety Report 20979003 (Version 1)
Quarter: 2022Q2

REPORT INFORMATION
  Report Type: Spontaneous
  Country: CA (occurrence: None)
  Receive Date: 20220619
  Receipt Date: 20220619
  Transmission Date: 20220721
  Serious: Yes (Disabling)
  Sender: FDA-Public Use
  Company Number: CA-ROCHE-3113580

PATIENT
  Age: 74 Year
  Sex: Female

DRUGS (77)
  1. ACTEMRA [Suspect]
     Active Substance: TOCILIZUMAB
     Indication: Rheumatoid arthritis
     Route: 042
  2. ACTEMRA [Suspect]
     Active Substance: TOCILIZUMAB
     Route: 042
  3. ACTEMRA [Suspect]
     Active Substance: TOCILIZUMAB
     Indication: Rheumatoid arthritis
     Route: 065
  4. RITUXIMAB [Suspect]
     Active Substance: RITUXIMAB
     Indication: Rheumatoid arthritis
     Route: 042
  5. RITUXIMAB [Suspect]
     Active Substance: RITUXIMAB
     Route: 042
  6. AZATHIOPRINE [Suspect]
     Active Substance: AZATHIOPRINE
     Indication: Rheumatoid arthritis
     Route: 065
  7. ANAKINRA [Suspect]
     Active Substance: ANAKINRA
     Indication: Rheumatoid arthritis
     Route: 065
  8. ANAKINRA [Suspect]
     Active Substance: ANAKINRA
     Route: 058
  9. ENBREL [Suspect]
     Active Substance: ETANERCEPT
     Indication: Rheumatoid arthritis
     Route: 065
  10. ENBREL [Suspect]
     Active Substance: ETANERCEPT
     Route: 058
  11. ACETAMINOPHEN [Suspect]
     Active Substance: ACETAMINOPHEN
     Indication: Premedication
     Route: 048
  12. ACETAMINOPHEN [Suspect]
     Active Substance: ACETAMINOPHEN
     Route: 048
  13. HYDROXYCHLOROQUINE [Suspect]
     Active Substance: HYDROXYCHLOROQUINE
     Indication: Product used for unknown indication
     Route: 065
  14. HYDROXYCHLOROQUINE [Suspect]
     Active Substance: HYDROXYCHLOROQUINE
     Route: 065
  15. REMICADE [Suspect]
     Active Substance: INFLIXIMAB
     Indication: Rheumatoid arthritis
     Route: 065
  16. REMICADE [Suspect]
     Active Substance: INFLIXIMAB
     Route: 042
  17. REMICADE [Suspect]
     Active Substance: INFLIXIMAB
     Route: 042
  18. REMICADE [Suspect]
     Active Substance: INFLIXIMAB
     Route: 065
  19. PREDNISONE [Suspect]
     Active Substance: PREDNISONE
     Indication: Product used for unknown indication
     Route: 065
  20. PREDNISONE [Suspect]
     Active Substance: PREDNISONE
     Route: 048
  21. RAMIPRIL [Suspect]
     Active Substance: RAMIPRIL
     Indication: Product used for unknown indication
     Route: 065
  22. RAMIPRIL [Suspect]
     Active Substance: RAMIPRIL
     Route: 048
  23. HUMIRA [Suspect]
     Active Substance: ADALIMUMAB
     Indication: Rheumatoid arthritis
     Route: 065
  24. HUMIRA [Suspect]
     Active Substance: ADALIMUMAB
     Route: 058
  25. HUMIRA [Suspect]
     Active Substance: ADALIMUMAB
     Route: 058
  26. FOLIC ACID [Suspect]
     Active Substance: FOLIC ACID
     Indication: Product used for unknown indication
     Route: 065
  27. FOLIC ACID [Suspect]
     Active Substance: FOLIC ACID
     Route: 065
  28. FOLIC ACID [Suspect]
     Active Substance: FOLIC ACID
     Route: 065
  29. FOLIC ACID [Suspect]
     Active Substance: FOLIC ACID
     Route: 065
  30. LEVOTHYROXINE SODIUM [Suspect]
     Active Substance: LEVOTHYROXINE SODIUM
     Indication: Product used for unknown indication
     Dosage: 1 DOSAGE FORM
     Route: 065
  31. LEVOTHYROXINE SODIUM [Suspect]
     Active Substance: LEVOTHYROXINE SODIUM
     Route: 058
  32. LEVOTHYROXINE SODIUM [Suspect]
     Active Substance: LEVOTHYROXINE SODIUM
     Route: 065
  33. LEVOTHYROXINE SODIUM [Suspect]
     Active Substance: LEVOTHYROXINE SODIUM
     Route: 065
  34. DORZOLAMIDE HYDROCHLORIDE\TIMOLOL MALEATE [Suspect]
     Active Substance: DORZOLAMIDE HYDROCHLORIDE\TIMOLOL MALEATE
     Indication: Product used for unknown indication
     Route: 065
  35. DORZOLAMIDE HYDROCHLORIDE\TIMOLOL MALEATE [Suspect]
     Active Substance: DORZOLAMIDE HYDROCHLORIDE\TIMOLOL MALEATE
     Route: 047
  36. ORENCIA [Suspect]
     Active Substance: ABATACEPT
     Indication: Rheumatoid arthritis
     Route: 065
  37. LEFLUNOMIDE [Suspect]
     Active Substance: LEFLUNOMIDE
     Indication: Rheumatoid arthritis
     Route: 048
  38. CODEINE [Suspect]
     Active Substance: CODEINE
     Indication: Product used for unknown indication
     Route: 065
  39. CODEINE [Suspect]
     Active Substance: CODEINE
     Route: 065
  40. METHOTREXATE [Suspect]
     Active Substance: METHOTREXATE
     Indication: Rheumatoid arthritis
     Route: 058
  41. METHOTREXATE [Suspect]
     Active Substance: METHOTREXATE
     Route: 058
  42. METHOTREXATE [Suspect]
     Active Substance: METHOTREXATE
     Route: 058
  43. METHOTREXATE [Suspect]
     Active Substance: METHOTREXATE
     Route: 065
  44. METHOTREXATE [Suspect]
     Active Substance: METHOTREXATE
     Route: 065
  45. HYDROXYCHLOROQUINE SULFATE [Suspect]
     Active Substance: HYDROXYCHLOROQUINE SULFATE
     Indication: Product used for unknown indication
     Route: 065
  46. HYDROXYCHLOROQUINE SULFATE [Suspect]
     Active Substance: HYDROXYCHLOROQUINE SULFATE
     Route: 065
  47. HYDROXYCHLOROQUINE SULFATE [Suspect]
     Active Substance: HYDROXYCHLOROQUINE SULFATE
     Route: 065
  48. HYDROXYCHLOROQUINE SULFATE [Suspect]
     Active Substance: HYDROXYCHLOROQUINE SULFATE
     Route: 048
  49. HYDROXYCHLOROQUINE SULFATE [Suspect]
     Active Substance: HYDROXYCHLOROQUINE SULFATE
     Route: 048
  50. ALTACE [Suspect]
     Active Substance: RAMIPRIL
     Indication: Product used for unknown indication
     Dosage: 1 DOSAGE FORM
     Route: 065
  51. TYLENOL WITH CODEINE [Concomitant]
     Active Substance: ACETAMINOPHEN\CODEINE PHOSPHATE
  52. DORZOLAMIDE HYDROCHLORIDE\TIMOLOL MALEATE [Concomitant]
     Active Substance: DORZOLAMIDE HYDROCHLORIDE\TIMOLOL MALEATE
     Route: 047
  53. DORZOLAMIDE HYDROCHLORIDE\TIMOLOL MALEATE [Concomitant]
     Active Substance: DORZOLAMIDE HYDROCHLORIDE\TIMOLOL MALEATE
     Dosage: 2 DOSAGE FORM
     Route: 047
  54. DORZOLAMIDE HYDROCHLORIDE\TIMOLOL MALEATE [Concomitant]
     Active Substance: DORZOLAMIDE HYDROCHLORIDE\TIMOLOL MALEATE
     Dosage: 2 DOSAGE FORM
     Route: 047
  55. DORZOLAMIDE HYDROCHLORIDE\TIMOLOL MALEATE [Concomitant]
     Active Substance: DORZOLAMIDE HYDROCHLORIDE\TIMOLOL MALEATE
     Dosage: 1 DOSAGE FORM
     Route: 047
  56. PHOSPHORIC ACID CODEINE [Concomitant]
  57. MEPROBAMATE [Concomitant]
     Active Substance: MEPROBAMATE
     Route: 065
  58. ACETAMINOPHEN\CAFFEINE [Concomitant]
     Active Substance: ACETAMINOPHEN\CAFFEINE
     Route: 065
  59. CAFFEINE;DIHYDROCODEINE BITARTRATE;PARACETAMOL [Concomitant]
     Route: 065
  60. ACETAMINOPHEN\CODEINE PHOSPHATE [Concomitant]
     Active Substance: ACETAMINOPHEN\CODEINE PHOSPHATE
  61. CAFFEINE [Concomitant]
     Active Substance: CAFFEINE
  62. TYLENOL [Concomitant]
     Active Substance: ACETAMINOPHEN
     Indication: Premedication
     Route: 065
  63. TYLENOL [Concomitant]
     Active Substance: ACETAMINOPHEN
     Route: 048
  64. DIPHENHYDRAMINE [Concomitant]
     Active Substance: DIPHENHYDRAMINE
     Indication: Premedication
     Route: 048
  65. ACETAMINOPHEN\CODEINE PHOSPHATE [Concomitant]
     Active Substance: ACETAMINOPHEN\CODEINE PHOSPHATE
     Route: 065
  66. SODIUM PHOSPHATE [Concomitant]
     Active Substance: SODIUM PHOSPHATE
     Route: 065
  67. METHYLPREDNISOLONE [Concomitant]
     Active Substance: METHYLPREDNISOLONE
     Indication: Premedication
     Route: 065
  68. METHYLPREDNISOLONE [Concomitant]
     Active Substance: METHYLPREDNISOLONE
     Route: 042
  69. PREDNISONE [Concomitant]
     Active Substance: PREDNISONE
     Route: 065
  70. PREDNISONE [Concomitant]
     Active Substance: PREDNISONE
     Route: 065
  71. PREDNISONE [Concomitant]
     Active Substance: PREDNISONE
     Route: 065
  72. PREDNISONE [Concomitant]
     Active Substance: PREDNISONE
     Route: 065
  73. HYDROXYCHLOROQUINE SULFATE [Concomitant]
     Active Substance: HYDROXYCHLOROQUINE SULFATE
     Indication: Product used for unknown indication
     Route: 065
  74. HYDROXYCHLOROQUINE SULFATE [Concomitant]
     Active Substance: HYDROXYCHLOROQUINE SULFATE
  75. HYDROXYCHLOROQUINE SULFATE [Concomitant]
     Active Substance: HYDROXYCHLOROQUINE SULFATE
     Route: 065
  76. HYDROXYCHLOROQUINE SULFATE [Concomitant]
     Active Substance: HYDROXYCHLOROQUINE SULFATE
     Route: 048
  77. HYDROXYCHLOROQUINE SULFATE [Concomitant]
     Active Substance: HYDROXYCHLOROQUINE SULFATE
     Route: 048

REACTIONS (13)
  - Hand deformity [Not Recovered/Not Resolved]
  - Injection site reaction [Not Recovered/Not Resolved]
  - Mobility decreased [Not Recovered/Not Resolved]
  - Condition aggravated [Not Recovered/Not Resolved]
  - Gait disturbance [Not Recovered/Not Resolved]
  - Sciatica [Not Recovered/Not Resolved]
  - Pain [Not Recovered/Not Resolved]
  - Dyspnoea [Not Recovered/Not Resolved]
  - Drug ineffective [Unknown]
  - Contraindicated product administered [Unknown]
  - Product use issue [Unknown]
  - Off label use [Unknown]
  - Treatment failure [Unknown]
